FAERS Safety Report 8876444 (Version 1)
Quarter: 2012Q4

REPORT INFORMATION
  Report Type: 
  Country: US (occurrence: US)
  Receive Date: 20121023
  Receipt Date: 20121023
  Transmission Date: 20130627
  Serious: No
  Sender: FDA-Public Use
  Company Number: US-ASTELLAS-2012US005303

PATIENT
  Sex: Male

DRUGS (10)
  1. PROGRAF [Suspect]
     Indication: RENAL TRANSPLANT
     Dosage: 3 mg, bid
     Route: 048
     Dates: start: 20070821
  2. LISINOPRIL [Concomitant]
     Indication: BLOOD PRESSURE
     Dosage: 2.5 mg, UID/QD
     Route: 048
     Dates: start: 2004
  3. CELLCEPT                           /01275102/ [Concomitant]
     Indication: RENAL TRANSPLANT
     Dosage: 250 mg, bid
     Route: 048
     Dates: start: 20070821
  4. PREDNISONE [Concomitant]
     Indication: RENAL TRANSPLANT
     Dosage: 1 mg twice weekly
     Route: 048
     Dates: start: 20070821
  5. DAPSONE [Concomitant]
     Indication: PRODUCT USED FOR UNKNOWN INDICATION
     Dosage: 100 mg, Weekly
     Route: 048
     Dates: start: 2008
  6. FAMOTIDINE [Concomitant]
     Indication: GASTRIC DISORDER
     Dosage: 10 mg, UID/QD
     Route: 048
     Dates: start: 20070821
  7. ASPIRIN [Concomitant]
     Indication: ANTICOAGULANT THERAPY
     Dosage: 81 mg, UID/QD
     Route: 048
     Dates: start: 20070821
  8. FISH OIL [Concomitant]
     Indication: PROPHYLAXIS
     Dosage: Unknown mg 3 times a week
     Route: 048
  9. DAILY MULTIVITAMIN [Concomitant]
     Indication: VITAMIN SUPPLEMENTATION
     Dosage: Once daily
     Route: 048
  10. IRON [Concomitant]
     Indication: MINERAL SUPPLEMENTATION
     Dosage: Unknown  mg twice a week
     Route: 048
     Dates: start: 2010

REACTIONS (1)
  - Osteoporosis [Unknown]
